FAERS Safety Report 8062222-0 (Version None)
Quarter: 2012Q1

REPORT INFORMATION
  Report Type: 
  Country: None (occurrence: None)
  Receive Date: 20120123
  Receipt Date: 20120109
  Transmission Date: 20120608
  Serious: Yes (Hospitalization)
  Sender: FDA-Public Use
  Company Number: FR-MYLANLABS-2012S1000481

PATIENT
  Age: 12 Year
  Sex: Male

DRUGS (37)
  1. ETOPOSIDE [Suspect]
     Dates: start: 20111219
  2. METHOTREXATE [Suspect]
     Indication: PRODUCT USED FOR UNKNOWN INDICATION
     Route: 037
     Dates: start: 20111108
  3. THIOGUANINE [Suspect]
     Dates: start: 20111206, end: 20111221
  4. CYTARABINE [Suspect]
     Route: 037
     Dates: start: 20111108
  5. KIDROLASE [Suspect]
     Indication: PRODUCT USED FOR UNKNOWN INDICATION
     Route: 042
     Dates: start: 20111109
  6. DEXAMETHASONE [Suspect]
     Dates: start: 20111120
  7. ELDISINE [Suspect]
     Dates: start: 20111121
  8. ONDANSETRON [Suspect]
     Dates: start: 20111109
  9. ONDANSETRON [Suspect]
     Dates: start: 20111116
  10. ONDANSETRON [Suspect]
     Dates: start: 20111121
  11. THIOGUANINE [Suspect]
     Indication: PRODUCT USED FOR UNKNOWN INDICATION
     Route: 048
     Dates: start: 20111206, end: 20111221
  12. CYTARABINE [Suspect]
     Indication: PRODUCT USED FOR UNKNOWN INDICATION
     Route: 042
     Dates: start: 20111205, end: 20111206
  13. KIDROLASE [Suspect]
     Dates: start: 20111111
  14. ELDISINE [Suspect]
     Indication: PRODUCT USED FOR UNKNOWN INDICATION
     Route: 042
     Dates: start: 20111107
  15. ONDANSETRON [Suspect]
     Indication: PRODUCT USED FOR UNKNOWN INDICATION
     Route: 042
     Dates: start: 20111207, end: 20111220
  16. KIDROLASE [Suspect]
     Dates: start: 20111121
  17. ELDISINE [Suspect]
     Dates: start: 20111114
  18. ONDANSETRON [Suspect]
     Dates: start: 20111114
  19. ONDANSETRON [Suspect]
     Dates: start: 20111212
  20. KIDROLASE [Suspect]
     Dates: start: 20111114
  21. KIDROLASE [Suspect]
     Dates: start: 20111118
  22. DOXORUBICIN HCL [Suspect]
     Indication: PRODUCT USED FOR UNKNOWN INDICATION
     Route: 042
     Dates: start: 20111107
  23. DEPO-MEDROL [Suspect]
     Indication: PRODUCT USED FOR UNKNOWN INDICATION
     Route: 037
     Dates: start: 20111108
  24. ONDANSETRON [Suspect]
     Dates: start: 20111118
  25. CYTARABINE [Suspect]
     Route: 042
     Dates: start: 20111212, end: 20111213
  26. ONDANSETRON [Suspect]
     Dates: start: 20111219
  27. DOXORUBICIN HCL [Suspect]
     Dates: start: 20111121
  28. ETOPOSIDE [Suspect]
     Indication: PRODUCT USED FOR UNKNOWN INDICATION
     Route: 042
     Dates: start: 20111205, end: 20111220
  29. ONDANSETRON [Suspect]
     Dates: start: 20111205
  30. METHOTREXATE [Suspect]
     Route: 037
     Dates: start: 20111207
  31. CYTARABINE [Suspect]
     Route: 042
     Dates: start: 20111219, end: 20111220
  32. CYTARABINE [Suspect]
     Route: 037
     Dates: start: 20111207
  33. KIDROLASE [Suspect]
     Dates: start: 20111116
  34. ETOPOSIDE [Suspect]
     Dates: start: 20111212
  35. DOXORUBICIN HCL [Suspect]
     Dates: start: 20111114
  36. DEXAMETHASONE [Suspect]
     Indication: PRODUCT USED FOR UNKNOWN INDICATION
     Route: 048
     Dates: start: 20111107
  37. DEPO-MEDROL [Suspect]
     Dates: start: 20111207

REACTIONS (1)
  - VENOOCCLUSIVE LIVER DISEASE [None]
